FAERS Safety Report 10504108 (Version 1)
Quarter: 2014Q4

REPORT INFORMATION
  Report Type: Spontaneous
  Country: US (occurrence: None)
  Receive Date: 20141007
  Receipt Date: 20141007
  Transmission Date: 20150528
  Serious: Yes (Hospitalization, Disabling)
  Sender: FDA-Public Use
  Company Number: None

PATIENT
  Age: 55 Year
  Sex: Female
  Weight: 44.45 kg

DRUGS (1)
  1. PROPOFOL. [Suspect]
     Active Substance: PROPOFOL
     Indication: SURGERY
     Route: 042

REACTIONS (6)
  - Drug ineffective [None]
  - Heart rate decreased [None]
  - White blood cell count increased [None]
  - Propofol infusion syndrome [None]
  - Blood pressure decreased [None]
  - Pancreatitis acute [None]

NARRATIVE: CASE EVENT DATE: 20120601
